FAERS Safety Report 5475102-1 (Version None)
Quarter: 2007Q4

REPORT INFORMATION
  Report Type: 
  Country: None (occurrence: None)
  Receive Date: 20071002
  Receipt Date: 20070924
  Transmission Date: 20080405
  Serious: Yes (Hospitalization)
  Sender: FDA-Public Use
  Company Number: FR-BRISTOL-MYERS SQUIBB COMPANY-13922935

PATIENT
  Age: 50 Year
  Sex: Male

DRUGS (1)
  1. ERBITUX [Suspect]
     Indication: NEOPLASM MALIGNANT
     Route: 042
     Dates: start: 20070829, end: 20070829

REACTIONS (6)
  - HYPERTENSION [None]
  - HYPOTENSION [None]
  - INFUSION RELATED REACTION [None]
  - LOSS OF CONSCIOUSNESS [None]
  - TACHYCARDIA [None]
  - URTICARIA [None]
